FAERS Safety Report 14320264 (Version 1)
Quarter: 2017Q4

REPORT INFORMATION
  Report Type: Spontaneous
  Country: DE (occurrence: DE)
  Receive Date: 20171222
  Receipt Date: 20171222
  Transmission Date: 20180321
  Serious: Yes (Death, Life-Threatening, Hospitalization)
  Sender: FDA-Public Use
  Company Number: DE-TEVA-2017-DE-834948

PATIENT
  Age: 76 Year
  Sex: Male
  Weight: 69 kg

DRUGS (15)
  1. RISPERDAL [Suspect]
     Active Substance: RISPERIDONE
     Indication: SCHIZOAFFECTIVE DISORDER
     Dosage: DOSAGE FORM: UNSPECIFIED
     Route: 048
     Dates: start: 20170126, end: 20170302
  2. METFORMIN [Concomitant]
     Active Substance: METFORMIN HYDROCHLORIDE
     Dosage: DOSAGE FORM: UNSPECIFIED
     Route: 048
     Dates: start: 2008, end: 20170302
  3. RAMIPRIL. [Concomitant]
     Active Substance: RAMIPRIL
     Dosage: DOSAGE FORM: UNSPECIFIED
     Route: 048
     Dates: start: 2008, end: 20170302
  4. AMLODIPINE [Concomitant]
     Active Substance: AMLODIPINE BESYLATE
     Dosage: DOSAGE FORM: UNSPECIFIED
     Route: 048
     Dates: start: 2008, end: 20170302
  5. VALPROAT [Suspect]
     Active Substance: VALPROATE SODIUM
     Indication: PRODUCT USED FOR UNKNOWN INDICATION
     Dosage: DOSAGE FORM: UNSPECIFIED
     Route: 048
     Dates: start: 20170218, end: 20170302
  6. ASPIRIN. [Concomitant]
     Active Substance: ASPIRIN
     Dosage: DOSAGE FORM: UNSPECIFIED
     Route: 048
     Dates: start: 2008, end: 20170302
  7. DIAZEPAM. [Suspect]
     Active Substance: DIAZEPAM
     Indication: PRODUCT USED FOR UNKNOWN INDICATION
     Dosage: DOSAGE FORM: UNSPECIFIED
     Route: 048
     Dates: start: 201702
  8. DIAZEPAM. [Suspect]
     Active Substance: DIAZEPAM
     Indication: PRODUCT USED FOR UNKNOWN INDICATION
     Dosage: DOSAGE FORM: UNSPECIFIED
     Route: 048
     Dates: start: 20170218, end: 20170221
  9. ATORVASTATIN [Concomitant]
     Active Substance: ATORVASTATIN
     Dosage: DOSAGE FORM: UNSPECIFIED
     Route: 048
     Dates: start: 2008, end: 20170302
  10. JANUVIA [Concomitant]
     Active Substance: SITAGLIPTIN PHOSPHATE
     Dosage: DOSAGE FORM: UNSPECIFIED, SINCE 5 YEARS
     Route: 048
     Dates: end: 20170302
  11. VALPROAT [Suspect]
     Active Substance: VALPROATE SODIUM
     Indication: PRODUCT USED FOR UNKNOWN INDICATION
     Dosage: DOSAGE FORM: UNSPECIFIED
     Route: 048
     Dates: start: 2008, end: 20170212
  12. VALPROAT [Suspect]
     Active Substance: VALPROATE SODIUM
     Indication: PRODUCT USED FOR UNKNOWN INDICATION
     Dosage: DOSAGE FORM: UNSPECIFIED
     Route: 048
     Dates: start: 20170213, end: 20170217
  13. MOXONIDIN [Concomitant]
     Active Substance: MOXONIDINE
     Dosage: DOSAGE FORM: UNSPECIFIED, SINCE 5 YEARS
     Route: 048
     Dates: end: 20170302
  14. DIAZEPAM. [Suspect]
     Active Substance: DIAZEPAM
     Indication: PRODUCT USED FOR UNKNOWN INDICATION
     Dosage: DOSAGE FORM: UNSPECIFIED
     Route: 048
     Dates: start: 20170222, end: 20170226
  15. DIAZEPAM. [Suspect]
     Active Substance: DIAZEPAM
     Indication: PRODUCT USED FOR UNKNOWN INDICATION
     Dosage: DOSAGE FORM: UNSPECIFIED
     Route: 048
     Dates: start: 20170227, end: 20170302

REACTIONS (5)
  - Urosepsis [Recovered/Resolved]
  - Cardiac failure [Fatal]
  - Hospitalisation [Unknown]
  - Urinary tract infection [Recovered/Resolved]
  - Schizoaffective disorder [Unknown]

NARRATIVE: CASE EVENT DATE: 201702
